FAERS Safety Report 11444923 (Version 4)
Quarter: 2015Q4

REPORT INFORMATION
  Report Type: Spontaneous
  Country: JP (occurrence: JP)
  Receive Date: 20150902
  Receipt Date: 20151210
  Transmission Date: 20160304
  Serious: Yes (Hospitalization)
  Sender: FDA-Public Use
  Company Number: JP-ROCHE-1627071

PATIENT
  Age: 17 Year
  Sex: Male
  Weight: 60 kg

DRUGS (6)
  1. ALLEGRA [Concomitant]
     Active Substance: FEXOFENADINE HYDROCHLORIDE
     Dosage: DOSAGE IS UNCERTAIN.
     Route: 048
     Dates: start: 20150508
  2. ONON [Concomitant]
     Active Substance: PRANLUKAST
     Dosage: DOSAGE IS UNCERTAIN.
     Route: 048
     Dates: start: 20150508
  3. RIVOTRIL [Suspect]
     Active Substance: CLONAZEPAM
     Indication: POST-TRAUMATIC EPILEPSY
     Route: 048
     Dates: start: 20150227, end: 20150814
  4. LOXOPROFEN NA [Concomitant]
     Active Substance: LOXOPROFEN SODIUM
     Dosage: DOSAGE IS UNCERTAIN.
     Route: 048
     Dates: start: 20150228
  5. REBAMIPIDE [Concomitant]
     Active Substance: REBAMIPIDE
     Dosage: DOSAGE IS UNCERTAIN.
     Route: 048
     Dates: start: 20150228
  6. LANSOPRAZOLE. [Concomitant]
     Active Substance: LANSOPRAZOLE
     Dosage: DOSAGE IS UNCERTAIN.
     Route: 048
     Dates: start: 20150227

REACTIONS (6)
  - Hepatic function abnormal [Unknown]
  - Somnolence [Unknown]
  - Dyskinesia [Unknown]
  - Diarrhoea [Recovered/Resolved]
  - Hyponatraemia [Recovered/Resolved]
  - Inappropriate antidiuretic hormone secretion [Unknown]

NARRATIVE: CASE EVENT DATE: 20150815
